FAERS Safety Report 6159175-9 (Version None)
Quarter: 2009Q2

REPORT INFORMATION
  Report Type: 
  Country: None (occurrence: None)
  Receive Date: 20090415
  Receipt Date: 20090402
  Transmission Date: 20091009
  Serious: Yes (Hospitalization, Other)
  Sender: FDA-Public Use
  Company Number: MIN-00491

PATIENT
  Age: 16 Year
  Sex: Female

DRUGS (2)
  1. MINOCYCLINE 50 MG [Suspect]
     Indication: ACNE
     Dosage: 50 MG TWICE A DAY
  2. ADDERALL 10 [Concomitant]

REACTIONS (1)
  - AUTOIMMUNE HEPATITIS [None]
